FAERS Safety Report 20164910 (Version 2)
Quarter: 2022Q1

REPORT INFORMATION
  Report Type: Other
  Country: US (occurrence: None)
  Receive Date: 20211209
  Receipt Date: 20220223
  Transmission Date: 20220423
  Serious: Yes (Other)
  Sender: FDA-Public Use
  Company Number: US-ROCHE-2971411

PATIENT
  Age: 67 Year
  Sex: Female
  Weight: 41.768 kg

DRUGS (2)
  1. OCREVUS [Suspect]
     Active Substance: OCRELIZUMAB
     Indication: Multiple sclerosis
     Dosage: DATE OF TREATMENTS: 18/SEP/2018, 01/JUN/2021, 02/JUN/2020, 07/SEP/2019, 19/MAR/2019, 01/DEC/2020
     Route: 042
     Dates: start: 20181019
  2. OCREVUS [Suspect]
     Active Substance: OCRELIZUMAB
     Indication: Relapsing-remitting multiple sclerosis
     Route: 042
     Dates: start: 20181019

REACTIONS (3)
  - Multiple sclerosis relapse [Recovering/Resolving]
  - Respiratory syncytial virus infection [Recovering/Resolving]
  - Weight decreased [Recovering/Resolving]

NARRATIVE: CASE EVENT DATE: 20210901
